FAERS Safety Report 4814962-1 (Version None)
Quarter: 2005Q4

REPORT INFORMATION
  Report Type: 
  Country: None (occurrence: None)
  Receive Date: 20051028
  Receipt Date: 20051017
  Transmission Date: 20060501
  Serious: Yes (Other)
  Sender: FDA-Public Use
  Company Number: KR-JNJFOC-20051003952

PATIENT
  Age: 28 Year
  Sex: Female

DRUGS (2)
  1. TYLENOL [Suspect]
  2. TYLENOL [Suspect]

REACTIONS (9)
  - ASTHENIA [None]
  - DIZZINESS [None]
  - DYSPNOEA [None]
  - FEELING COLD [None]
  - HEADACHE [None]
  - HYPERHIDROSIS [None]
  - HYPOAESTHESIA [None]
  - LOSS OF CONSCIOUSNESS [None]
  - SPEECH DISORDER [None]
